FAERS Safety Report 23183227 (Version 1)
Quarter: 2023Q4

REPORT INFORMATION
  Report Type: Spontaneous
  Country: CN (occurrence: CN)
  Receive Date: 20231114
  Receipt Date: 20231114
  Transmission Date: 20240110
  Serious: Yes (Other)
  Sender: FDA-Public Use
  Company Number: CN-009507513-2311CHN003181

PATIENT
  Age: 86 Year
  Sex: Male
  Weight: 40 kg

DRUGS (2)
  1. CILASTATIN SODIUM\IMIPENEM [Suspect]
     Active Substance: CILASTATIN SODIUM\IMIPENEM
     Indication: Pneumonitis
     Dosage: 1 GRAM, BID
     Route: 041
     Dates: start: 20231029, end: 20231029
  2. CILASTATIN SODIUM\IMIPENEM [Suspect]
     Active Substance: CILASTATIN SODIUM\IMIPENEM
     Dosage: 1 GRAM, TID
     Route: 041
     Dates: start: 20231030, end: 20231101

REACTIONS (6)
  - Epilepsy [Recovering/Resolving]
  - Pneumonia [Unknown]
  - Vital functions abnormal [Unknown]
  - Critical illness [Unknown]
  - Coma [Unknown]
  - Incorrect dosage administered [Unknown]

NARRATIVE: CASE EVENT DATE: 20231029
